FAERS Safety Report 5465270-X (Version None)
Quarter: 2007Q3

REPORT INFORMATION
  Report Type: 
  Country: None (occurrence: None)
  Receive Date: 20070924
  Receipt Date: 20070919
  Transmission Date: 20080115
  Serious: Yes (Death, Other)
  Sender: FDA-Public Use
  Company Number: PHBS2007BR15519

PATIENT
  Age: 46 Year
  Sex: Female

DRUGS (1)
  1. ZOMETA [Suspect]
     Indication: MULTIPLE MYELOMA

REACTIONS (3)
  - ACUTE LYMPHOCYTIC LEUKAEMIA [None]
  - DEATH [None]
  - OSTEONECROSIS [None]
